FAERS Safety Report 4996710-8 (Version None)
Quarter: 2006Q2

REPORT INFORMATION
  Report Type: 
  Country: None (occurrence: None)
  Receive Date: 20060509
  Receipt Date: 20030605
  Transmission Date: 20061013
  Serious: Yes (Hospitalization, Disabling)
  Sender: FDA-Public Use
  Company Number: US-MERCK-0306USA00821

PATIENT
  Age: 49 Year
  Sex: Male
  Weight: 118 kg

DRUGS (2)
  1. VIOXX [Suspect]
     Indication: BACK PAIN
     Route: 048
     Dates: start: 20010601, end: 20010701
  2. ASPIRIN [Concomitant]
     Route: 065

REACTIONS (31)
  - ACUTE MYOCARDIAL INFARCTION [None]
  - ADVERSE EVENT [None]
  - ANXIETY [None]
  - ARTHRALGIA [None]
  - ATELECTASIS [None]
  - BACK PAIN [None]
  - BUTTOCK PAIN [None]
  - CHEST PAIN [None]
  - CHRONIC OBSTRUCTIVE PULMONARY DISEASE [None]
  - CORONARY ARTERY DISEASE [None]
  - DIABETES MELLITUS [None]
  - DIABETES MELLITUS NON-INSULIN-DEPENDENT [None]
  - DIZZINESS [None]
  - DYSPNOEA [None]
  - FEELING HOT [None]
  - HEADACHE [None]
  - HIP ARTHROPLASTY [None]
  - HYPERHIDROSIS [None]
  - HYPOKALAEMIA [None]
  - INCISIONAL DRAINAGE [None]
  - INFLUENZA LIKE ILLNESS [None]
  - OBESITY [None]
  - PAIN [None]
  - PAIN IN EXTREMITY [None]
  - PARANOIA [None]
  - PARANOID PERSONALITY DISORDER [None]
  - POST PROCEDURAL COMPLICATION [None]
  - PYREXIA [None]
  - SPERMATOCELE [None]
  - SPINAL DISORDER [None]
  - VENTRICULAR DYSFUNCTION [None]
